FAERS Safety Report 5078352-1 (Version None)
Quarter: 2006Q3

REPORT INFORMATION
  Report Type: 
  Country: None (occurrence: None)
  Receive Date: 20060811
  Receipt Date: 20060804
  Transmission Date: 20061208
  Serious: Yes (Hospitalization)
  Sender: FDA-Public Use
  Company Number: US-GLAXOSMITHKLINE-A0615296A

PATIENT
  Age: 79 Year
  Sex: Male

DRUGS (3)
  1. AVANDARYL [Suspect]
     Dosage: 1TAB PER DAY
     Route: 048
  2. ACTOS [Concomitant]
  3. PREVACID [Concomitant]

REACTIONS (5)
  - BLOOD AMYLASE INCREASED [None]
  - CHEST PAIN [None]
  - LIPASE INCREASED [None]
  - PAIN [None]
  - PANCREATITIS [None]
